FAERS Safety Report 6560185-8 (Version None)
Quarter: 2010Q1

REPORT INFORMATION
  Report Type: 
  Country: None (occurrence: None)
  Receive Date: 20100129
  Receipt Date: 20050314
  Transmission Date: 20100710
  Serious: Yes (Hospitalization, Congenital Anomaly, Other)
  Sender: FDA-Public Use
  Company Number: US-ALLERGAN-200500660

PATIENT
  Age: 1 Day
  Sex: Female

DRUGS (1)
  1. BOTOX COSMETIC [Suspect]
     Indication: DRUG EXPOSURE DURING PREGNANCY
     Route: 064

REACTIONS (4)
  - ARTERIAL DISORDER [None]
  - OESOPHAGEAL ATRESIA [None]
  - PREMATURE BABY [None]
  - TRACHEO-OESOPHAGEAL FISTULA [None]
